FAERS Safety Report 16325647 (Version 1)
Quarter: 2019Q2

REPORT INFORMATION
  Report Type: Spontaneous
  Country: US (occurrence: US)
  Receive Date: 20190516
  Receipt Date: 20190516
  Transmission Date: 20190711
  Serious: Yes (Other)
  Sender: FDA-Public Use
  Company Number: None

PATIENT
  Age: 51 Year
  Sex: Female
  Weight: 90.9 kg

DRUGS (1)
  1. LOSARTAN/HCTZ 50-12.5 [Suspect]
     Active Substance: HYDROCHLOROTHIAZIDE\LOSARTAN
     Indication: HYPERTENSION
     Dosage: ?          QUANTITY:1 TABLET(S);?
     Route: 048
     Dates: start: 20190516, end: 20190516

REACTIONS (5)
  - Pruritus [None]
  - Restlessness [None]
  - Hypersomnia [None]
  - Pollakiuria [None]
  - Confusional state [None]

NARRATIVE: CASE EVENT DATE: 20190516
